FAERS Safety Report 23183424 (Version 2)
Quarter: 2023Q4

REPORT INFORMATION
  Report Type: Spontaneous
  Country: CN (occurrence: CN)
  Receive Date: 20231114
  Receipt Date: 20231120
  Transmission Date: 20240110
  Serious: Yes (Other)
  Sender: FDA-Public Use
  Company Number: CN-009507513-2311CHN002687

PATIENT
  Age: 57 Year
  Sex: Male

DRUGS (9)
  1. PEMBROLIZUMAB [Suspect]
     Active Substance: PEMBROLIZUMAB
     Indication: Lung adenocarcinoma
     Dosage: 200 MILLIGRAM, D1 Q3W
     Dates: start: 20210603
  2. PEMBROLIZUMAB [Suspect]
     Active Substance: PEMBROLIZUMAB
     Dosage: 200 MILLIGRAM, D1 Q3W
     Dates: start: 20210903
  3. PEMBROLIZUMAB [Suspect]
     Active Substance: PEMBROLIZUMAB
     Dosage: 200 MILLIGRAM, D1 Q3W, 17TH CYCLE
     Dates: start: 202206, end: 202206
  4. PEMBROLIZUMAB [Suspect]
     Active Substance: PEMBROLIZUMAB
     Dosage: 200 MILLIGRAM, D1 Q3W
     Dates: start: 20221011, end: 20221011
  5. PEMETREXED [Suspect]
     Active Substance: PEMETREXED
     Indication: Lung adenocarcinoma stage IV
     Dosage: 950 MILLIGRAM, D1 Q3W
     Dates: start: 20210603
  6. PEMETREXED [Suspect]
     Active Substance: PEMETREXED
     Dosage: 950 MILLIGRAM, D1 Q3W
     Dates: start: 20210903
  7. PEMETREXED [Suspect]
     Active Substance: PEMETREXED
     Dosage: 950 MILLIGRAM, D1 Q3W, 17TH CYCLE
     Dates: start: 202206, end: 202206
  8. PEMETREXED [Suspect]
     Active Substance: PEMETREXED
     Dosage: 950 MILLIGRAM, D1 Q3W
     Dates: start: 20221011, end: 20221011
  9. CARBOPLATIN [Concomitant]
     Active Substance: CARBOPLATIN
     Indication: Lung adenocarcinoma stage IV
     Dosage: 600 MILLIGRAM, D1 Q3W
     Dates: start: 20210603, end: 2021

REACTIONS (4)
  - Immune-mediated cystitis [Recovering/Resolving]
  - Ureteritis [Recovering/Resolving]
  - Tubulointerstitial nephritis [Recovering/Resolving]
  - Product use issue [Unknown]

NARRATIVE: CASE EVENT DATE: 20210903
